FAERS Safety Report 20040993 (Version 1)
Quarter: 2021Q4

REPORT INFORMATION
  Report Type: Spontaneous
  Country: US (occurrence: US)
  Receive Date: 20211107
  Receipt Date: 20211107
  Transmission Date: 20220304
  Serious: No
  Sender: FDA-Public Use
  Company Number: US-SA-SAC20211102000071

PATIENT
  Sex: Female

DRUGS (7)
  1. DUPIXENT [Suspect]
     Active Substance: DUPILUMAB
     Indication: Dermatitis atopic
     Dosage: 300 MG, QOW
     Route: 058
  2. CLARITHROMYCIN [Concomitant]
     Active Substance: CLARITHROMYCIN
  3. TRIAMCINOLONE ACETONIDE [Concomitant]
     Active Substance: TRIAMCINOLONE ACETONIDE
     Indication: Dermatitis atopic
  4. MUPIROCIN [Concomitant]
     Active Substance: MUPIROCIN
  5. EPINEPHRINE [Concomitant]
     Active Substance: EPINEPHRINE
     Dosage: 0.3MG/0.3 AUTO INJECTOR
  6. ALBUTEROL SULFATE [Concomitant]
     Active Substance: ALBUTEROL SULFATE
     Indication: Asthma
     Dosage: 10MG
  7. BREO ELLIPTA [Concomitant]
     Active Substance: FLUTICASONE FUROATE\VILANTEROL TRIFENATATE
     Dosage: 200-25 MCG BLST W/DEV

REACTIONS (9)
  - Asthma [Unknown]
  - Rebound atopic dermatitis [Unknown]
  - Hypersensitivity [Unknown]
  - Pruritus [Unknown]
  - Skin haemorrhage [Unknown]
  - Dyspnoea [Unknown]
  - COVID-19 [Recovered/Resolved]
  - Cutaneous symptom [Unknown]
  - Product dose omission issue [Unknown]

NARRATIVE: CASE EVENT DATE: 20210901
